FAERS Safety Report 21679105 (Version 1)
Quarter: 2022Q4

REPORT INFORMATION
  Report Type: Spontaneous
  Country: CA (occurrence: CA)
  Receive Date: 20221204
  Receipt Date: 20221204
  Transmission Date: 20230113
  Serious: Yes (Life-Threatening, Hospitalization, Other)
  Sender: FDA-Public Use
  Company Number: CA-BRISTOL-MYERS SQUIBB COMPANY-2022-146591

PATIENT
  Age: 64 Year
  Sex: Male

DRUGS (7)
  1. OPDIVO [Suspect]
     Active Substance: NIVOLUMAB
     Indication: Metastatic malignant melanoma
     Dosage: 100MG/10ML (SINGLE-USE VIAL)
     Route: 042
  2. OPDIVO [Suspect]
     Active Substance: NIVOLUMAB
     Dosage: 40MG/4ML (SINGLE-USE VIAL)
     Route: 042
  3. ACETAMINOPHEN [Concomitant]
     Active Substance: ACETAMINOPHEN
  4. AMLODIPINE [Concomitant]
     Active Substance: AMLODIPINE BESYLATE
  5. GABAPENTIN [Concomitant]
     Active Substance: GABAPENTIN
  6. NAPROXEN [Concomitant]
     Active Substance: NAPROXEN
  7. RABEPRAZOLE [Concomitant]
     Active Substance: RABEPRAZOLE

REACTIONS (11)
  - Decreased appetite [Recovering/Resolving]
  - Drug-induced liver injury [Recovering/Resolving]
  - Dyspnoea [Recovering/Resolving]
  - Fatigue [Recovering/Resolving]
  - Hyponatraemia [Recovering/Resolving]
  - Hypophagia [Recovering/Resolving]
  - Inappropriate antidiuretic hormone secretion [Recovering/Resolving]
  - Paraesthesia [Recovering/Resolving]
  - Pyrexia [Recovering/Resolving]
  - Adverse event [Recovering/Resolving]
  - Acute kidney injury [Recovering/Resolving]
